FAERS Safety Report 8620743 (Version 2)
Quarter: 2013Q4

REPORT INFORMATION
  Report Type: Spontaneous
  Country: US (occurrence: US)
  Receive Date: 20120619
  Receipt Date: 20131204
  Transmission Date: 20140711
  Serious: No
  Sender: FDA-Public Use
  Company Number: US-ASTRAZENECA-2012SE36224

PATIENT
  Sex: Male

DRUGS (4)
  1. NEXIUM [Suspect]
     Indication: DYSPEPSIA
     Route: 048
  2. NEXIUM [Suspect]
     Indication: GASTROOESOPHAGEAL REFLUX DISEASE
     Route: 048
  3. PRILOSEC [Suspect]
     Route: 048
  4. TUMS [Concomitant]
     Dosage: FOR 2 TIMES IN LAST 10 YEARS

REACTIONS (15)
  - Osteoporosis [Unknown]
  - Multiple fractures [Unknown]
  - Pain [Unknown]
  - Emotional distress [Unknown]
  - Anxiety [Unknown]
  - Panic attack [Unknown]
  - Arthritis [Unknown]
  - Calcium deficiency [Unknown]
  - Crohn^s disease [Unknown]
  - Rheumatoid arthritis [Unknown]
  - Androgen deficiency [Unknown]
  - Bone loss [Unknown]
  - Sleep disorder [Unknown]
  - Liver disorder [Unknown]
  - Depression [Unknown]
